FAERS Safety Report 22362549 (Version 1)
Quarter: 2023Q2

REPORT INFORMATION
  Report Type: Spontaneous
  Country: US (occurrence: US)
  Receive Date: 20230524
  Receipt Date: 20230524
  Transmission Date: 20230721
  Serious: No
  Sender: FDA-Public Use
  Company Number: US-BRISTOL-MYERS SQUIBB COMPANY-2023-073297

PATIENT
  Age: 62 Year
  Sex: Male
  Weight: 99.79 kg

DRUGS (1)
  1. LENALIDOMIDE [Suspect]
     Active Substance: LENALIDOMIDE
     Indication: Plasma cell myeloma
     Dosage: DAILY 1-21, THE 7 DAYS OFF
     Route: 048
     Dates: start: 20230426, end: 20230521

REACTIONS (3)
  - Nausea [Unknown]
  - Diarrhoea [Unknown]
  - Erythema [Unknown]
